FAERS Safety Report 5104558-9 (Version None)
Quarter: 2006Q3

REPORT INFORMATION
  Report Type: 
  Country: None (occurrence: None)
  Receive Date: 20060914
  Receipt Date: 20060420
  Transmission Date: 20061208
  Serious: No
  Sender: FDA-Public Use
  Company Number: US-BRISTOL-MYERS SQUIBB COMPANY-13352828

PATIENT
  Sex: Male

DRUGS (5)
  1. CYTOXAN [Suspect]
  2. METHOTREXATE [Suspect]
  3. ADRIAMYCIN [Suspect]
  4. ASCORBIC ACID [Suspect]
  5. TRISENOX [Suspect]

REACTIONS (1)
  - VISION BLURRED [None]
